FAERS Safety Report 12477986 (Version 2)
Quarter: 2016Q3

REPORT INFORMATION
  Report Type: Spontaneous
  Country: US (occurrence: US)
  Receive Date: 20160617
  Receipt Date: 20160715
  Transmission Date: 20161109
  Serious: Yes (Hospitalization, Other)
  Sender: FDA-Public Use
  Company Number: US-TAKEDA-2016TUS010155

PATIENT
  Age: 64 Year
  Sex: Female
  Weight: 103.86 kg

DRUGS (1)
  1. CONTRAVE [Suspect]
     Active Substance: BUPROPION HYDROCHLORIDE\NALTREXONE HYDROCHLORIDE
     Indication: OBESITY
     Dosage: UNK, BID
     Route: 048
     Dates: start: 201604, end: 201606

REACTIONS (1)
  - Post procedural pulmonary embolism [Recovering/Resolving]

NARRATIVE: CASE EVENT DATE: 201606
